FAERS Safety Report 9538989 (Version 1)
Quarter: 2013Q2

REPORT INFORMATION
  Report Type: Spontaneous
  Country: US (occurrence: None)
  Receive Date: 20130507
  Receipt Date: 20130507
  Transmission Date: 20140414
  Serious: Yes (Other)
  Sender: FDA-Public Use
  Company Number: PHEH2012US023076

PATIENT
  Age: 71 Year
  Sex: Female

DRUGS (8)
  1. TASIGNA (AMN107) CAPSULE [Suspect]
     Indication: CHRONIC MYELOID LEUKAEMIA
     Route: 048
     Dates: start: 20120605
  2. AMOXICILLIN [Concomitant]
  3. MURO 128 (SODIUM CHLORIDE) [Concomitant]
  4. REFRESH TEARS (CARMELLOSE SODIUM) [Concomitant]
  5. METAMUCIL (PLANTAGO OVATA) [Concomitant]
  6. DIVALPROEX (VALPROATE SEMISODIUM) [Concomitant]
  7. ZOMIG (ZOLMITRIPTAN) [Concomitant]
  8. MULTIPLE VITAMINS (ASCORBIC ACID, ERGOCALCIFEROL, FOLIC ACID, RETINOL, TOCOPHEROL, VITAMIN B NOS) [Concomitant]

REACTIONS (4)
  - Thrombocytopenia [None]
  - Dizziness [None]
  - Headache [None]
  - Pain [None]
